FAERS Safety Report 8878928 (Version 1)
Quarter: 2012Q4

REPORT INFORMATION
  Report Type: 
  Country: US (occurrence: US)
  Receive Date: 20121026
  Receipt Date: 20121026
  Transmission Date: 20130627
  Serious: Yes (Other)
  Sender: FDA-Public Use
  Company Number: US-ROCHE-1134660

PATIENT
  Sex: Male

DRUGS (3)
  1. RAPTIVA [Suspect]
     Indication: PSORIASIS
     Dosage: Conditioning dose
     Route: 065
  2. RAPTIVA [Suspect]
     Indication: PUSTULAR PSORIASIS
  3. EPIPEN [Concomitant]
     Route: 065

REACTIONS (2)
  - Pruritus [Unknown]
  - Skin plaque [Unknown]
